FAERS Safety Report 4341632-9 (Version None)
Quarter: 2004Q2

REPORT INFORMATION
  Report Type: 
  Country: None (occurrence: None)
  Receive Date: 20040415
  Receipt Date: 20040408
  Transmission Date: 20050107
  Serious: No
  Sender: FDA-Public Use
  Company Number: 2004UW05193

PATIENT
  Age: 60 Year
  Sex: Male
  Weight: 54.8852 kg

DRUGS (12)
  1. ZOLADEX [Suspect]
     Indication: PROSTATE CANCER
     Dosage: 10.8 MG ONCE SQ
     Route: 058
     Dates: start: 20040212
  2. CASODEX [Concomitant]
  3. CIPROFLOXACIN HYDROCHLORIDE [Concomitant]
  4. RIFAMPIN [Concomitant]
  5. HYDROCORTISONE [Concomitant]
  6. TRIAMCINOLONE ACETONIDE [Concomitant]
  7. FLUOCINONIDE [Concomitant]
  8. FLURANDRENOLIDE [Concomitant]
  9. TERAZOSIN HYDROCHLORIDE [Concomitant]
  10. ABSORBASE [Concomitant]
  11. CLOBETASOL PROPRIONATE [Concomitant]
  12. SULFASALAZINE [Concomitant]

REACTIONS (2)
  - DERMATITIS PSORIASIFORM [None]
  - LICHEN PLANUS [None]
